FAERS Safety Report 4374912-1 (Version None)
Quarter: 2004Q2

REPORT INFORMATION
  Report Type: 
  Country: None (occurrence: None)
  Receive Date: 20040604
  Receipt Date: 20040521
  Transmission Date: 20050107
  Serious: No
  Sender: FDA-Public Use
  Company Number: 2004AP02334

PATIENT
  Age: 69 Year
  Sex: Male
  Weight: 65 kg

DRUGS (15)
  1. SEROQUEL [Suspect]
     Indication: DELUSION
     Dosage: 25 MG DAILY PO
     Route: 048
     Dates: start: 20031006, end: 20031017
  2. SEROQUEL [Suspect]
     Indication: HALLUCINATION
     Dosage: 25 MG DAILY PO
     Route: 048
     Dates: start: 20031006, end: 20031017
  3. SEROQUEL [Suspect]
     Indication: HEAD INJURY
     Dosage: 25 MG DAILY PO
     Route: 048
     Dates: start: 20031006, end: 20031017
  4. SEROQUEL [Suspect]
     Indication: DELUSION
     Dosage: 25 MG BID PO
     Route: 048
     Dates: start: 20031018, end: 20031104
  5. SEROQUEL [Suspect]
     Indication: HALLUCINATION
     Dosage: 25 MG BID PO
     Route: 048
     Dates: start: 20031018, end: 20031104
  6. SEROQUEL [Suspect]
     Indication: HEAD INJURY
     Dosage: 25 MG BID PO
     Route: 048
     Dates: start: 20031018, end: 20031104
  7. SEROQUEL [Suspect]
     Indication: DELUSION
     Dosage: 25 MG DAILY PO
     Route: 048
     Dates: start: 20031105, end: 20040217
  8. SEROQUEL [Suspect]
     Indication: HALLUCINATION
     Dosage: 25 MG DAILY PO
     Route: 048
     Dates: start: 20031105, end: 20040217
  9. SEROQUEL [Suspect]
     Indication: HEAD INJURY
     Dosage: 25 MG DAILY PO
     Route: 048
     Dates: start: 20031105, end: 20040217
  10. MAGNESIUM OXIDE [Concomitant]
  11. AMOBAN [Concomitant]
  12. LEVOTOMIN [Concomitant]
  13. NORVASC [Concomitant]
  14. LINTON [Concomitant]
  15. QUAZEPAM [Concomitant]

REACTIONS (3)
  - CONVULSION [None]
  - HYPONATRAEMIA [None]
  - STATUS EPILEPTICUS [None]
